FAERS Safety Report 25157264 (Version 2)
Quarter: 2025Q2

REPORT INFORMATION
  Report Type: Spontaneous
  Country: US (occurrence: US)
  Receive Date: 20250403
  Receipt Date: 20250502
  Transmission Date: 20250717
  Serious: Yes (Hospitalization, Other)
  Sender: COOPERSURGICAL
  Company Number: US-COOPERSURGICAL, INC.-2025CPS002283

PATIENT
  Sex: Male
  Weight: 1.9 kg

DRUGS (1)
  1. PARAGARD T 380A [Suspect]
     Active Substance: COPPER
     Indication: Contraception
     Dates: start: 20210601, end: 20240524

REACTIONS (14)
  - Foetal distress syndrome [Recovered/Resolved]
  - Neonatal respiratory distress syndrome [Recovered/Resolved]
  - Premature baby [Recovered/Resolved]
  - Foetal growth restriction [Recovered/Resolved]
  - Cyanosis neonatal [Recovered/Resolved]
  - Disturbance of thermoregulation of newborn [Recovered/Resolved]
  - Neonatal hypotension [Recovered/Resolved]
  - Hypermagnesaemia [Recovered/Resolved]
  - Poor feeding infant [Recovered/Resolved]
  - Mucopolysaccharidosis I [Unknown]
  - Bradycardia neonatal [Recovered/Resolved]
  - Neonatal hypoxia [Recovered/Resolved]
  - Anaemia [Recovered/Resolved]
  - Foetal exposure during pregnancy [Recovered/Resolved]

NARRATIVE: CASE EVENT DATE: 20240101
